FAERS Safety Report 23331039 (Version 1)
Quarter: 2023Q4

REPORT INFORMATION
  Report Type: Spontaneous
  Country: FR (occurrence: FR)
  Receive Date: 20231222
  Receipt Date: 20231222
  Transmission Date: 20240110
  Serious: Yes (Other)
  Sender: FDA-Public Use
  Company Number: FR-PFIZER INC-PV202300201994

PATIENT
  Age: 88 Year
  Sex: Female

DRUGS (4)
  1. METHYLPREDNISOLONE SODIUM SUCCINATE [Suspect]
     Active Substance: METHYLPREDNISOLONE SODIUM SUCCINATE
     Indication: Uveitis
     Dosage: 750 MG, 1X/DAY FOR 3 DAYS
     Route: 042
  2. PREDNISOLONE ACETATE [Suspect]
     Active Substance: PREDNISOLONE ACETATE
     Indication: Uveitis
     Dosage: UNK, QID
  3. TIMOLOL [Concomitant]
     Active Substance: TIMOLOL
     Dosage: UNK, 2X/DAY
  4. ATROPINE [Concomitant]
     Active Substance: ATROPINE\ATROPINE SULFATE
     Dosage: UNK, 2X/DAY

REACTIONS (2)
  - Psychotic symptom [Unknown]
  - Self-injurious ideation [Unknown]
